FAERS Safety Report 7032846-8 (Version None)
Quarter: 2010Q4

REPORT INFORMATION
  Report Type: 
  Country: None (occurrence: None)
  Receive Date: 20101007
  Receipt Date: 20090821
  Transmission Date: 20110411
  Serious: No
  Sender: FDA-Public Use
  Company Number: US-PFIZER INC-2009257360

PATIENT
  Sex: Female
  Weight: 54.422 kg

DRUGS (1)
  1. ANTIVERT [Suspect]
     Indication: VERTIGO
     Dosage: 12.5 MG, 1X/DAY
     Route: 048
     Dates: start: 19880101

REACTIONS (1)
  - CONSTIPATION [None]
